FAERS Safety Report 13450246 (Version 3)
Quarter: 2021Q2

REPORT INFORMATION
  Report Type: Report from Study
  Country: US (occurrence: US)
  Receive Date: 20170417
  Receipt Date: 20210412
  Transmission Date: 20210716
  Serious: Yes (Other)
  Sender: FDA-Public Use
  Company Number: US-AMGEN-USASP2017057310

PATIENT
  Age: 61 Year
  Sex: Female

DRUGS (2)
  1. METHOTREXATE. [Concomitant]
     Active Substance: METHOTREXATE
     Dosage: UNK
  2. ENBREL [Suspect]
     Active Substance: ETANERCEPT
     Indication: PSORIATIC ARTHROPATHY
     Dosage: UNK
     Route: 065

REACTIONS (7)
  - Osteonecrosis of jaw [Recovering/Resolving]
  - Intervertebral disc protrusion [Unknown]
  - Pneumococcal infection [Unknown]
  - Postoperative wound infection [Unknown]
  - Injection site pain [Unknown]
  - Back pain [Not Recovered/Not Resolved]
  - Streptococcal infection [Unknown]

NARRATIVE: CASE EVENT DATE: 2016
